FAERS Safety Report 14927931 (Version 2)
Quarter: 2018Q2

REPORT INFORMATION
  Report Type: Spontaneous
  Country: NZ (occurrence: NZ)
  Receive Date: 20180523
  Receipt Date: 20180621
  Transmission Date: 20180711
  Serious: Yes (Disabling)
  Sender: FDA-Public Use
  Company Number: NZ-ROCHE-2122092

PATIENT
  Age: 29 Year
  Sex: Male

DRUGS (2)
  1. TECENTRIQ [Suspect]
     Active Substance: ATEZOLIZUMAB
     Indication: ADENOCARCINOMA OF APPENDIX
     Route: 042
     Dates: start: 20171113, end: 20171113
  2. COTELLIC [Suspect]
     Active Substance: COBIMETINIB
     Indication: ADENOCARCINOMA OF APPENDIX
     Route: 048
     Dates: start: 20171113, end: 20171127

REACTIONS (4)
  - Intentional product use issue [Unknown]
  - Off label use [Unknown]
  - Fatigue [Recovered/Resolved with Sequelae]
  - Pyrexia [Recovered/Resolved]

NARRATIVE: CASE EVENT DATE: 20171124
